FAERS Safety Report 10617998 (Version 1)
Quarter: 2014Q4

REPORT INFORMATION
  Report Type: Spontaneous
  Country: US (occurrence: US)
  Receive Date: 20141201
  Receipt Date: 20141201
  Transmission Date: 20150529
  Serious: No
  Sender: FDA-Public Use
  Company Number: US-009507513-1411USA011243

PATIENT
  Age: 23 Year
  Sex: Female
  Weight: 43.84 kg

DRUGS (2)
  1. IMPLANON [Suspect]
     Active Substance: ETONOGESTREL
     Indication: CONTRACEPTION
     Dosage: UNK
     Route: 059
     Dates: start: 20111112
  2. ANTIVIRAL (UNSPECIFIED) [Concomitant]
     Active Substance: UNSPECIFIED INGREDIENT
     Dosage: UNK

REACTIONS (12)
  - Dehydration [Unknown]
  - Dyspnoea [Unknown]
  - Uterine contractions abnormal [Unknown]
  - Haemorrhage [Unknown]
  - Adnexa uteri pain [Unknown]
  - Metrorrhagia [Unknown]
  - Pulmonary pain [Unknown]
  - Palpitations [Unknown]
  - Musculoskeletal chest pain [Unknown]
  - Decreased appetite [Unknown]
  - Lung disorder [Unknown]
  - Menstruation irregular [Unknown]

NARRATIVE: CASE EVENT DATE: 20111212
